FAERS Safety Report 4546454-1 (Version None)
Quarter: 2005Q1

REPORT INFORMATION
  Report Type: 
  Country: None (occurrence: None)
  Receive Date: 20050103
  Receipt Date: 20041221
  Transmission Date: 20050727
  Serious: Yes (Other)
  Sender: FDA-Public Use
  Company Number: MED000003

PATIENT
  Age: 22 Year
  Sex: Male
  Weight: 88.905 kg

DRUGS (2)
  1. SODIUM CHLORIDE 0.9% [Suspect]
     Indication: PLASMAPHERESIS
     Dosage: ONCE; INTRAVENOUS
     Route: 042
     Dates: start: 20041216, end: 20041216
  2. SODIUM CITRATE [Suspect]
     Indication: PLASMAPHERESIS
     Dosage: ONCE; INTRAVENOUS
     Route: 042
     Dates: start: 20041216, end: 20041216

REACTIONS (16)
  - ASTHENIA [None]
  - CHEST DISCOMFORT [None]
  - COUGH [None]
  - DIZZINESS [None]
  - DYSGEUSIA [None]
  - HYPERHIDROSIS [None]
  - HYPOAESTHESIA [None]
  - NAUSEA [None]
  - PALLOR [None]
  - PERIORBITAL OEDEMA [None]
  - POST PROCEDURAL COMPLICATION [None]
  - PROCEDURAL COMPLICATION [None]
  - RASH [None]
  - SWELLING FACE [None]
  - VOMITING [None]
  - WHEEZING [None]
